FAERS Safety Report 6962995-1 (Version None)
Quarter: 2010Q3

REPORT INFORMATION
  Report Type: 
  Country: None (occurrence: None)
  Receive Date: 20100902
  Receipt Date: 20100823
  Transmission Date: 20110219
  Serious: Yes (Disabling, Other)
  Sender: FDA-Public Use
  Company Number: GB-ROCHE-723180

PATIENT

DRUGS (2)
  1. CAPECITABINE [Suspect]
     Indication: COLORECTAL CANCER
     Dosage: DAY 1-14 EVERY 21 DAYS FOR 8 ADJUVANT OR 6 PALLIATIVE CYCLES
     Route: 048
  2. OXALIPLATIN [Suspect]
     Indication: COLORECTAL CANCER
     Dosage: OVER 2HOURS ON DAY 1 EVERY 21 DAYS FOR 8 ADJUVANT OR 6 PALLIATIVE CYCLES
     Route: 042

REACTIONS (4)
  - LARYNGOSPASM [None]
  - MUSCULAR WEAKNESS [None]
  - NEUROPATHY PERIPHERAL [None]
  - VISUAL IMPAIRMENT [None]
